FAERS Safety Report 23415659 (Version 1)
Quarter: 2024Q1

REPORT INFORMATION
  Report Type: Spontaneous
  Country: CZ (occurrence: CZ)
  Receive Date: 20240118
  Receipt Date: 20240118
  Transmission Date: 20240410
  Serious: Yes (Hospitalization, Other)
  Sender: FDA-Public Use
  Company Number: None

PATIENT
  Age: 66 Year
  Sex: Male
  Weight: 82 kg

DRUGS (11)
  1. CAPECITABINE [Suspect]
     Active Substance: CAPECITABINE
     Indication: Colorectal cancer
     Dosage: 4-0-4 TABLETS DAILY 1.-14TH DAY OF CYCLE, TWO CYCLES ADMINISTRATED
     Dates: start: 20230711, end: 20230813
  2. OXALIPLATIN [Suspect]
     Active Substance: OXALIPLATIN
     Indication: Colorectal cancer
     Dosage: 265MG ADMINISTRATED 2 TIMES
     Dates: start: 20230711, end: 20230801
  3. ROSUVASTATIN CALCIUM [Concomitant]
     Active Substance: ROSUVASTATIN CALCIUM
     Indication: Dyslipidaemia
     Dates: end: 20230829
  4. BISULEPIN [Concomitant]
     Active Substance: BISULEPIN
     Indication: Allergy prophylaxis
     Dosage: BEFORE CHEMMOTHERAPY, ADMINISTRATED 2 TIMES
     Dates: start: 20230711, end: 20230801
  5. DEXAMED [Concomitant]
     Indication: Prophylaxis of nausea and vomiting
     Dosage: 2 TIMES ADMINISTERED
     Dates: start: 20230711, end: 20230801
  6. GRANISETRON [Concomitant]
     Active Substance: GRANISETRON
     Indication: Prophylaxis of nausea and vomiting
     Dosage: 2 TIMES ADMINISTERED
     Dates: start: 20230711, end: 20230801
  7. EMPAGLIFLOZIN, METFORMIN [Concomitant]
     Indication: Type 2 diabetes mellitus
     Dosage: 1-0-1, 1 DOSE 5MG/1000MG
  8. FENOFIX [Concomitant]
     Indication: Dyslipidaemia
  9. METOPROLOL [Concomitant]
     Active Substance: METOPROLOL
     Indication: Hypertension
  10. TIMO-COMOD [Concomitant]
     Indication: Glaucoma
  11. CONTROLOC [Concomitant]
     Active Substance: PANTOPRAZOLE SODIUM
     Indication: Prophylaxis
     Dosage: 2 TIMES ADMINISTERED
     Dates: start: 20230711, end: 20230801

REACTIONS (9)
  - Diarrhoea [Unknown]
  - Faeces pale [Recovered/Resolved]
  - Biliary dilatation [Unknown]
  - Cholelithiasis [Unknown]
  - Hepatic steatosis [Unknown]
  - Liver disorder [Recovered/Resolved]
  - Abdominal pain [Unknown]
  - Chromaturia [Recovered/Resolved]
  - Hepatitis [Recovered/Resolved]

NARRATIVE: CASE EVENT DATE: 20230711
